FAERS Safety Report 6840750-0 (Version None)
Quarter: 2010Q3

REPORT INFORMATION
  Report Type: 
  Country: None (occurrence: None)
  Receive Date: 20100714
  Receipt Date: 20100702
  Transmission Date: 20110219
  Serious: Yes (Hospitalization)
  Sender: FDA-Public Use
  Company Number: US-PFIZER INC-2010083302

PATIENT
  Sex: Male
  Weight: 77 kg

DRUGS (9)
  1. XALATAN [Suspect]
     Indication: GLAUCOMA
     Dosage: 1 DROP, 1X/DAY
     Route: 047
     Dates: start: 20100101
  2. XALEASE [Suspect]
     Dosage: UNK
     Route: 047
     Dates: start: 20100601
  3. CRESTOR [Concomitant]
     Indication: BLOOD CHOLESTEROL INCREASED
     Dosage: 10 MG, 1X/DAY
     Route: 048
  4. ASPIRIN [Concomitant]
     Indication: ARTHRITIS
     Dosage: 81MG FOR FOUR DAYS IN A WEEK
     Route: 048
  5. ASPIRIN [Concomitant]
     Dosage: 325 MG FOR THREE DAYS IN A WEEK
  6. FLOVENT [Concomitant]
     Indication: ASTHMA
     Dosage: UNK
     Route: 055
  7. LISINOPRIL [Concomitant]
     Indication: HYPERTENSION
     Dosage: 10 MG, 1X/DAY
     Route: 048
  8. METOPROLOL [Concomitant]
     Indication: HYPERTENSION
     Dosage: 25 MG, 1X/DAY
     Route: 048
  9. ALBUTEROL SULFATE [Concomitant]
     Indication: ASTHMA
     Dosage: UNK
     Route: 055

REACTIONS (4)
  - DEVICE MALFUNCTION [None]
  - DRUG INEFFECTIVE [None]
  - MYOCARDIAL INFARCTION [None]
  - PRODUCT QUALITY ISSUE [None]
